FAERS Safety Report 18468967 (Version 1)
Quarter: 2020Q4

REPORT INFORMATION
  Report Type: Spontaneous
  Country: US (occurrence: US)
  Receive Date: 20201105
  Receipt Date: 20201105
  Transmission Date: 20210114
  Serious: Yes (Hospitalization)
  Sender: FDA-Public Use
  Company Number: None

PATIENT
  Age: 61 Year
  Sex: Female
  Weight: 73.9 kg

DRUGS (5)
  1. VANCOMYCIN [Concomitant]
     Active Substance: VANCOMYCIN
     Dates: start: 20200604, end: 20200604
  2. EXENATIDE ER [Suspect]
     Active Substance: EXENATIDE
     Indication: GLUCOSE TOLERANCE IMPAIRED
     Dosage: ?          OTHER FREQUENCY:CONTROL GROUP;?
     Route: 058
  3. EXENATIDE ER [Suspect]
     Active Substance: EXENATIDE
     Indication: RENAL TRANSPLANT
     Dosage: ?          OTHER FREQUENCY:CONTROL GROUP;?
     Route: 058
  4. CEFEPIME [Concomitant]
     Active Substance: CEFEPIME HYDROCHLORIDE
     Dates: start: 20200604, end: 20200606
  5. KEFLEX [Concomitant]
     Active Substance: CEPHALEXIN
     Dates: start: 20200607, end: 20200617

REACTIONS (4)
  - Urinary tract infection [None]
  - Pyelonephritis [None]
  - Vomiting [None]
  - Sepsis [None]

NARRATIVE: CASE EVENT DATE: 20200604
